FAERS Safety Report 8453059-9 (Version None)
Quarter: 2012Q2

REPORT INFORMATION
  Report Type: 
  Country: None (occurrence: None)
  Receive Date: 20120620
  Receipt Date: 20120618
  Transmission Date: 20120825
  Serious: Yes (Hospitalization)
  Sender: FDA-Public Use
  Company Number: PHHY2012US052114

PATIENT
  Age: 57 Year
  Sex: Male

DRUGS (1)
  1. PENICILLIN G POTASSIUM [Suspect]
     Dosage: 3 MIU, Q4H
     Route: 042

REACTIONS (5)
  - JARISCH-HERXHEIMER REACTION [None]
  - ISCHAEMIC STROKE [None]
  - MONOPLEGIA [None]
  - GRAND MAL CONVULSION [None]
  - PYREXIA [None]
